FAERS Safety Report 23952157 (Version 1)
Quarter: 2024Q2

REPORT INFORMATION
  Report Type: Spontaneous
  Country: ZA (occurrence: None)
  Receive Date: 20240607
  Receipt Date: 20240607
  Transmission Date: 20240716
  Serious: Yes (Hospitalization)
  Sender: FDA-Public Use
  Company Number: 2024A127676

PATIENT
  Age: 40 Year
  Sex: Female

DRUGS (8)
  1. BUDESONIDE\FORMOTEROL [Suspect]
     Active Substance: BUDESONIDE\FORMOTEROL
     Indication: Asthma
     Dosage: 120 DOSE 160/4.5 MCG; UNKNOWN UNKNOWN
     Route: 055
  2. BUDESONIDE\FORMOTEROL [Concomitant]
     Active Substance: BUDESONIDE\FORMOTEROL
     Indication: Asthma
     Dosage: 60 DOSE 320/9 MCG
  3. RUPALLERG [Concomitant]
     Indication: Hypersensitivity
  4. SYNALEVE [Concomitant]
     Indication: Pain
  5. PYROCAPS [Concomitant]
     Indication: Pain
  6. OMEPRAZOLE [Concomitant]
     Active Substance: DONEPEZIL HYDROCHLORIDE\OMEPRAZOLE\OMEPRAZOLE MAGNESIUM
     Indication: Ulcer
  7. NORFLEX CO [Concomitant]
  8. MEDROL [Concomitant]
     Active Substance: METHYLPREDNISOLONE
     Dates: end: 20240521

REACTIONS (4)
  - Salmonella bacteraemia [Unknown]
  - Gastritis bacterial [Unknown]
  - Asthenia [Unknown]
  - Cough [Unknown]
